FAERS Safety Report 13135841 (Version 4)
Quarter: 2017Q1

REPORT INFORMATION
  Report Type: Report from Study
  Country: MX (occurrence: MX)
  Receive Date: 20170120
  Receipt Date: 20170210
  Transmission Date: 20170428
  Serious: Yes (Other)
  Sender: FDA-Public Use
  Company Number: PHHY2017MX006971

PATIENT
  Age: 13 Year
  Sex: Male

DRUGS (3)
  1. RITALINE [Suspect]
     Active Substance: METHYLPHENIDATE HYDROCHLORIDE
     Indication: CEREBRAL DISORDER
     Dosage: 1 DF, QD
     Route: 065
     Dates: start: 201607
  2. TRILEPTAL [Suspect]
     Active Substance: OXCARBAZEPINE
     Indication: CEREBRAL DISORDER
     Dosage: 1.5 DF, QD (0.5 IN MORNING + 1 AT NIGHT)
     Route: 065
     Dates: start: 201607
  3. RITALIN LA [Suspect]
     Active Substance: METHYLPHENIDATE HYDROCHLORIDE
     Indication: CEREBRAL DISORDER
     Dosage: 0.5 DF, BID (1/2 IN MORNING AND 1/2 AT NIGHT)
     Route: 065
     Dates: start: 201607

REACTIONS (10)
  - Disturbance in attention [Unknown]
  - Cognitive disorder [Not Recovered/Not Resolved]
  - Conduct disorder [Unknown]
  - Eye irritation [Unknown]
  - Diplopia [Unknown]
  - Impulsive behaviour [Not Recovered/Not Resolved]
  - Excessive eye blinking [Unknown]
  - Wrong technique in product usage process [Not Recovered/Not Resolved]
  - Drug ineffective [Unknown]
  - Product use issue [Not Recovered/Not Resolved]

NARRATIVE: CASE EVENT DATE: 201607
